FAERS Safety Report 9185878 (Version 2)
Quarter: 2013Q2

REPORT INFORMATION
  Report Type: Spontaneous
  Country: US (occurrence: US)
  Receive Date: 20130325
  Receipt Date: 20130530
  Transmission Date: 20140414
  Serious: Yes (Hospitalization, Other)
  Sender: FDA-Public Use
  Company Number: US-ELI_LILLY_AND_COMPANY-US201303006085

PATIENT
  Age: 86 Year
  Sex: Female

DRUGS (2)
  1. FORTEO [Suspect]
     Indication: OSTEOPOROSIS
     Dosage: UNK, QD
     Dates: end: 201201
  2. RECLAST [Concomitant]
     Dosage: UNK
     Dates: start: 201201

REACTIONS (4)
  - Femur fracture [Unknown]
  - Loss of consciousness [Unknown]
  - Fall [Unknown]
  - Contusion [Unknown]
